FAERS Safety Report 7156274-X (Version None)
Quarter: 2010Q4

REPORT INFORMATION
  Report Type: 
  Country: None (occurrence: None)
  Receive Date: 20101214
  Receipt Date: 20101202
  Transmission Date: 20110411
  Serious: Yes (Hospitalization)
  Sender: FDA-Public Use
  Company Number: FR-PFIZER INC-2010170223

PATIENT
  Age: 48 Year
  Sex: Male

DRUGS (3)
  1. CEFIXIME [Suspect]
     Indication: TONSILLITIS
     Dosage: 200 MG, UNK
     Route: 048
     Dates: start: 20100816, end: 20100818
  2. ADVIL [Suspect]
     Indication: TONSILLITIS
     Dosage: 200 MG, UNK
     Route: 048
     Dates: start: 20100816, end: 20100818
  3. DOLIPRANE [Concomitant]
     Indication: TONSILLITIS
     Dosage: UNK
     Dates: start: 20100816

REACTIONS (2)
  - ARTHRALGIA [None]
  - ERYTHEMA NODOSUM [None]
